FAERS Safety Report 10073935 (Version 2)
Quarter: 2014Q2

REPORT INFORMATION
  Report Type: Spontaneous
  Country: DE (occurrence: DE)
  Receive Date: 20140412
  Receipt Date: 20140502
  Transmission Date: 20141212
  Serious: Yes (Life-Threatening, Hospitalization, Other)
  Sender: FDA-Public Use
  Company Number: PHHY2014DE043904

PATIENT
  Age: 75 Year
  Sex: Female

DRUGS (6)
  1. TOREM [Concomitant]
     Dosage: 10 MG, UNK
     Route: 048
  2. SPIRONOLACTONE [Concomitant]
     Dosage: 50 MG, UNK
     Route: 048
  3. SANDIMMUN [Suspect]
     Indication: PROPHYLAXIS AGAINST TRANSPLANT REJECTION
     Dosage: 50 MG, BID
  4. SANDIMMUN [Suspect]
     Dosage: 100 MG, UNK
     Route: 048
  5. SANDIMMUN [Suspect]
     Indication: PROPHYLAXIS AGAINST TRANSPLANT REJECTION
     Dosage: 1/3 OF PREVIOUS DAILY DOSAGE
     Route: 065
  6. DACORTIN H [Concomitant]
     Indication: IMMUNOSUPPRESSION
     Dosage: 10 MG, UNK
     Route: 048

REACTIONS (5)
  - Ovarian cancer metastatic [Recovered/Resolved with Sequelae]
  - Ileus [Recovered/Resolved with Sequelae]
  - Metastases to peritoneum [Recovered/Resolved with Sequelae]
  - Metastases to gastrointestinal tract [Recovered/Resolved with Sequelae]
  - Short-bowel syndrome [Recovered/Resolved with Sequelae]
